FAERS Safety Report 6893620-6 (Version None)
Quarter: 2010Q3

REPORT INFORMATION
  Report Type: 
  Country: None (occurrence: None)
  Receive Date: 20100731
  Receipt Date: 20091030
  Transmission Date: 20110219
  Serious: No
  Sender: FDA-Public Use
  Company Number: US-PFIZER INC-2009271077

PATIENT
  Sex: Female
  Weight: 72.562 kg

DRUGS (4)
  1. LIPITOR [Suspect]
     Indication: HYPERCHOLESTEROLAEMIA
     Dosage: 20 MG, 1X/DAY
     Route: 048
     Dates: start: 20040701
  2. PROTONIX [Concomitant]
     Indication: GASTROOESOPHAGEAL REFLUX DISEASE
     Dosage: 20 MG, 1X/DAY
     Route: 048
  3. HYZAAR [Concomitant]
     Indication: HYPERTENSION
     Dosage: HYDROCHLOROTHIAZIDE 12.5 MG/LOSARTAN POTASSIUM 50MG
     Route: 048
  4. METOPROLOL [Concomitant]
     Dosage: 50 MG, 2X/DAY
     Route: 048

REACTIONS (1)
  - LIMB DISCOMFORT [None]
